FAERS Safety Report 18558908 (Version 5)
Quarter: 2021Q3

REPORT INFORMATION
  Report Type: Spontaneous
  Country: ES (occurrence: ES)
  Receive Date: 20201130
  Receipt Date: 20210706
  Transmission Date: 20211014
  Serious: Yes (Death, Life-Threatening, Hospitalization, Other)
  Sender: FDA-Public Use
  Company Number: ES-BEH-2020125511

PATIENT
  Age: 38 Year
  Sex: Male

DRUGS (145)
  1. IDELVION [Suspect]
     Active Substance: COAGULATION FACTOR IX RECOMBINANT HUMAN
     Indication: PROPHYLAXIS
     Dosage: 50 INTERNATIONAL UNIT/KILOGRAM, QW
     Route: 065
     Dates: start: 202011
  2. IDELVION [Suspect]
     Active Substance: COAGULATION FACTOR IX RECOMBINANT HUMAN
     Indication: HAEMARTHROSIS
     Dosage: 4000 INTERNATIONAL UNIT, TOT
     Route: 042
     Dates: start: 20210111
  3. IDELVION [Suspect]
     Active Substance: COAGULATION FACTOR IX RECOMBINANT HUMAN
     Dosage: 4000 INTERNATIONAL UNIT, TOT
     Route: 042
     Dates: start: 20210308
  4. IDELVION [Suspect]
     Active Substance: COAGULATION FACTOR IX RECOMBINANT HUMAN
     Dosage: 2000 INTERNATIONAL UNIT, TOT
     Route: 042
     Dates: start: 20210318
  5. IDELVION [Suspect]
     Active Substance: COAGULATION FACTOR IX RECOMBINANT HUMAN
     Dosage: 4000 INTERNATIONAL UNIT, TOT
     Route: 042
     Dates: start: 20210402, end: 20210402
  6. IDELVION [Suspect]
     Active Substance: COAGULATION FACTOR IX RECOMBINANT HUMAN
     Dosage: 2000 INTERNATIONAL UNIT, TOT
     Route: 042
     Dates: start: 20210409, end: 20210409
  7. IDELVION [Suspect]
     Active Substance: COAGULATION FACTOR IX RECOMBINANT HUMAN
     Dosage: UNK
     Route: 042
     Dates: start: 20210405, end: 20210423
  8. IDELVION [Suspect]
     Active Substance: COAGULATION FACTOR IX RECOMBINANT HUMAN
     Dosage: UNK
     Route: 042
     Dates: start: 20210405, end: 20210423
  9. IDELVION [Suspect]
     Active Substance: COAGULATION FACTOR IX RECOMBINANT HUMAN
     Dosage: UNK
     Route: 042
     Dates: start: 20210405, end: 20210423
  10. IDELVION [Suspect]
     Active Substance: COAGULATION FACTOR IX RECOMBINANT HUMAN
     Dosage: 2000 INTERNATIONAL UNIT, SINGLE
     Route: 042
     Dates: start: 20210413, end: 20210413
  11. IDELVION [Suspect]
     Active Substance: COAGULATION FACTOR IX RECOMBINANT HUMAN
     Dosage: 2000 INTERNATIONAL UNIT, SINGLE
     Route: 042
     Dates: start: 20210413, end: 20210413
  12. CLONIDINA [CLONIDINE HYDROCHLORIDE] [Concomitant]
     Dosage: 0.15 MILLIGRAM, BID
     Dates: start: 20210409, end: 20210410
  13. DEXMEDETOMIDINA [DEXMEDETOMIDINE] [Concomitant]
     Active Substance: DEXMEDETOMIDINE
     Dosage: 0.700 MCG/KG, QH
     Route: 042
     Dates: start: 20210415, end: 20210418
  14. GLUCOSA [GLUCOSE] [Concomitant]
     Active Substance: ANHYDROUS DEXTROSE
     Dosage: 500 MILLILITER, CONTINUOUS PERFUSION
     Route: 042
     Dates: start: 20210404, end: 20210404
  15. NICARDIPINO [Concomitant]
     Active Substance: NICARDIPINE
     Dosage: 20 MILLIGRAM, TID
     Dates: start: 20210408, end: 20210410
  16. NICARDIPINO [Concomitant]
     Active Substance: NICARDIPINE
     Dosage: 20 MILLIGRAM, Q8H IF BLOOD PRESSURE
     Dates: start: 20210415, end: 20210420
  17. IDELVION [Suspect]
     Active Substance: COAGULATION FACTOR IX RECOMBINANT HUMAN
     Dosage: 4000 INTERNATIONAL UNIT, TOT
     Route: 042
     Dates: start: 20210217
  18. IDELVION [Suspect]
     Active Substance: COAGULATION FACTOR IX RECOMBINANT HUMAN
     Dosage: 2000 INTERNATIONAL UNIT, TOT
     Route: 042
     Dates: start: 20210303
  19. IDELVION [Suspect]
     Active Substance: COAGULATION FACTOR IX RECOMBINANT HUMAN
     Dosage: 4000 INTERNATIONAL UNIT, TOT
     Route: 042
     Dates: start: 20210315
  20. IDELVION [Suspect]
     Active Substance: COAGULATION FACTOR IX RECOMBINANT HUMAN
     Dosage: 4000 INTERNATIONAL UNIT, TOT
     Route: 042
     Dates: start: 20210402, end: 20210402
  21. IDELVION [Suspect]
     Active Substance: COAGULATION FACTOR IX RECOMBINANT HUMAN
     Dosage: 6000 INTERNATIONAL UNIT, TOT
     Route: 042
     Dates: start: 20210411, end: 20210411
  22. IDELVION [Suspect]
     Active Substance: COAGULATION FACTOR IX RECOMBINANT HUMAN
     Dosage: 4000 INTERNATIONAL UNIT, BID
     Route: 042
     Dates: start: 20210403, end: 20210404
  23. IDELVION [Suspect]
     Active Substance: COAGULATION FACTOR IX RECOMBINANT HUMAN
     Dosage: UNK
     Route: 042
     Dates: start: 20210405, end: 20210423
  24. IDELVION [Suspect]
     Active Substance: COAGULATION FACTOR IX RECOMBINANT HUMAN
     Dosage: UNK
     Route: 042
     Dates: start: 20210405, end: 20210423
  25. AMOXICILLIN AND CLAVULANATE POTASSIUM [Concomitant]
     Active Substance: AMOXICILLIN\CLAVULANATE POTASSIUM
     Dosage: 1000 MILLIGRAM, TID
     Route: 042
     Dates: start: 20210403, end: 20210405
  26. CLORURO DE SODIO [Concomitant]
     Active Substance: SODIUM CHLORIDE
     Dosage: 2000 MILLILITER, TOT
     Route: 042
     Dates: start: 20210402, end: 20210403
  27. FENTANILO [FENTANYL] [Concomitant]
     Dosage: 50 MICROGRAM, Q4H
     Route: 042
     Dates: start: 20210406, end: 20210407
  28. FOSFATO MONOPOTASSICO [Concomitant]
     Dosage: 20 MILLIMOLE, TOT
     Route: 042
     Dates: start: 20210405, end: 20210405
  29. LINEZOLID. [Concomitant]
     Active Substance: LINEZOLID
     Dosage: 600 MILLIGRAM, BID
     Route: 042
     Dates: start: 20210412, end: 20210418
  30. OMEPRAZOL [OMEPRAZOLE] [Concomitant]
     Active Substance: OMEPRAZOLE
     Dosage: 40 MILLIGRAM, QD
     Route: 042
     Dates: start: 20210402, end: 20210409
  31. PARACETAMOL [Concomitant]
     Active Substance: ACETAMINOPHEN
     Dosage: 1000 MILLIGRAM, Q8H PRN
     Route: 042
     Dates: start: 20210402, end: 20210402
  32. PROPOFOL. [Concomitant]
     Active Substance: PROPOFOL
     Dosage: 20 MILLIGRAM, CONTINUOUS BY PHYSICIAN^S ORDER
     Route: 042
     Dates: start: 20210406, end: 20210407
  33. QUETIAPINA [Concomitant]
     Active Substance: QUETIAPINE
     Dosage: 25 MILLIGRAM, QD
     Dates: start: 20210409, end: 20210410
  34. IDELVION [Suspect]
     Active Substance: COAGULATION FACTOR IX RECOMBINANT HUMAN
     Indication: HAEMORRHAGE PROPHYLAXIS
     Dosage: 50 INTERNATIONAL UNIT/KILOGRAM, QOW
     Route: 065
  35. IDELVION [Suspect]
     Active Substance: COAGULATION FACTOR IX RECOMBINANT HUMAN
     Indication: HAEMARTHROSIS
     Dosage: UNK
     Route: 065
     Dates: start: 202101
  36. IDELVION [Suspect]
     Active Substance: COAGULATION FACTOR IX RECOMBINANT HUMAN
     Indication: HAEMORRHAGE INTRACRANIAL
     Dosage: 2000 INTERNATIONAL UNIT, TOT
     Route: 042
     Dates: start: 20210114
  37. IDELVION [Suspect]
     Active Substance: COAGULATION FACTOR IX RECOMBINANT HUMAN
     Dosage: 2000 INTERNATIONAL UNIT, TOT
     Route: 042
     Dates: start: 20210115
  38. IDELVION [Suspect]
     Active Substance: COAGULATION FACTOR IX RECOMBINANT HUMAN
     Dosage: 2000 INTERNATIONAL UNIT, TOT
     Route: 042
     Dates: start: 20210228
  39. IDELVION [Suspect]
     Active Substance: COAGULATION FACTOR IX RECOMBINANT HUMAN
     Dosage: 2000 INTERNATIONAL UNIT, TOT
     Route: 042
     Dates: start: 20210228
  40. IDELVION [Suspect]
     Active Substance: COAGULATION FACTOR IX RECOMBINANT HUMAN
     Dosage: 4000 INTERNATIONAL UNIT
     Route: 042
     Dates: start: 20210329
  41. IDELVION [Suspect]
     Active Substance: COAGULATION FACTOR IX RECOMBINANT HUMAN
     Dosage: 4000 INTERNATIONAL UNIT, TOT
     Route: 042
     Dates: start: 20210402, end: 20210402
  42. IDELVION [Suspect]
     Active Substance: COAGULATION FACTOR IX RECOMBINANT HUMAN
     Dosage: 4000 INTERNATIONAL UNIT, TOT
     Route: 042
     Dates: start: 20210402, end: 20210402
  43. IDELVION [Suspect]
     Active Substance: COAGULATION FACTOR IX RECOMBINANT HUMAN
     Dosage: 6000 INTERNATIONAL UNIT, TOT
     Route: 042
     Dates: start: 20210411, end: 20210411
  44. IDELVION [Suspect]
     Active Substance: COAGULATION FACTOR IX RECOMBINANT HUMAN
     Dosage: UNK
     Route: 042
     Dates: start: 20210405, end: 20210423
  45. IDELVION [Suspect]
     Active Substance: COAGULATION FACTOR IX RECOMBINANT HUMAN
     Dosage: 2000 INTERNATIONAL UNIT, BID
     Route: 042
     Dates: start: 20210405, end: 20210406
  46. IDELVION [Suspect]
     Active Substance: COAGULATION FACTOR IX RECOMBINANT HUMAN
     Dosage: 4000 INTERNATIONAL UNIT, SINGLE
     Route: 042
     Dates: start: 20210412, end: 20210412
  47. CEFEPIMA [CEFEPIME] [Concomitant]
     Active Substance: CEFEPIME HYDROCHLORIDE
     Dosage: 1000 MILLIGRAM, Q4H
     Route: 042
     Dates: start: 20210420, end: 20210424
  48. CLONIDINA [CLONIDINE HYDROCHLORIDE] [Concomitant]
     Dosage: 0.150 MILLIGRAM, TID
     Dates: start: 20210407, end: 20210409
  49. LEVETIRACETAM. [Concomitant]
     Active Substance: LEVETIRACETAM
     Dosage: 500 MILLIGRAM, BID
     Dates: start: 20210410, end: 20210420
  50. NICARDIPINO [Concomitant]
     Active Substance: NICARDIPINE
     Dosage: 20 MILLIGRAM, TID
     Dates: start: 20210410, end: 20210412
  51. NORADRENALINA [NOREPINEPHRINE] [Concomitant]
     Dosage: 1000 MICROGRAM, CONTINUOUS IF BLOOD PRESSURE
     Route: 042
     Dates: start: 20210423, end: 20210424
  52. PARACETAMOL [Concomitant]
     Active Substance: ACETAMINOPHEN
     Dosage: 1000 MILLIGRAM, Q8H IF RESTLESSNESS/AGITATION
     Route: 042
     Dates: start: 20210407, end: 20210409
  53. PIPERACILINA + TAZOBACTAM [Concomitant]
     Active Substance: PIPERACILLIN SODIUM\TAZOBACTAM SODIUM
     Dosage: 4000 MILLIGRAM, QID
     Route: 042
     Dates: start: 20210407, end: 20210415
  54. IDELVION [Suspect]
     Active Substance: COAGULATION FACTOR IX RECOMBINANT HUMAN
     Indication: HAEMARTHROSIS
     Dosage: 4000 INTERNATIONAL UNIT, TOT
     Route: 042
     Dates: start: 20210111
  55. IDELVION [Suspect]
     Active Substance: COAGULATION FACTOR IX RECOMBINANT HUMAN
     Dosage: 2000 INTERNATIONAL UNIT, TOT
     Route: 042
     Dates: start: 20210115
  56. IDELVION [Suspect]
     Active Substance: COAGULATION FACTOR IX RECOMBINANT HUMAN
     Dosage: 4000 INTERNATIONAL UNIT, TOT
     Route: 042
     Dates: start: 20210224
  57. IDELVION [Suspect]
     Active Substance: COAGULATION FACTOR IX RECOMBINANT HUMAN
     Dosage: 4000 INTERNATIONAL UNIT, TOT
     Route: 042
     Dates: start: 20210224
  58. IDELVION [Suspect]
     Active Substance: COAGULATION FACTOR IX RECOMBINANT HUMAN
     Dosage: 2000 INTERNATIONAL UNIT, TOT
     Route: 042
     Dates: start: 20210303
  59. IDELVION [Suspect]
     Active Substance: COAGULATION FACTOR IX RECOMBINANT HUMAN
     Dosage: 4000 INTERNATIONAL UNIT, TOT
     Route: 042
     Dates: start: 20210322
  60. IDELVION [Suspect]
     Active Substance: COAGULATION FACTOR IX RECOMBINANT HUMAN
     Dosage: 4000 INTERNATIONAL UNIT, TOT
     Route: 042
     Dates: start: 202104, end: 202104
  61. IDELVION [Suspect]
     Active Substance: COAGULATION FACTOR IX RECOMBINANT HUMAN
     Dosage: 4000 INTERNATIONAL UNIT, BID
     Route: 042
     Dates: start: 20210403, end: 20210404
  62. IDELVION [Suspect]
     Active Substance: COAGULATION FACTOR IX RECOMBINANT HUMAN
     Dosage: UNK
     Route: 042
     Dates: start: 20210405, end: 20210423
  63. IDELVION [Suspect]
     Active Substance: COAGULATION FACTOR IX RECOMBINANT HUMAN
     Dosage: UNK
     Route: 042
     Dates: start: 20210405, end: 20210423
  64. IDELVION [Suspect]
     Active Substance: COAGULATION FACTOR IX RECOMBINANT HUMAN
     Dosage: UNK
     Route: 042
     Dates: start: 20210405, end: 20210423
  65. IDELVION [Suspect]
     Active Substance: COAGULATION FACTOR IX RECOMBINANT HUMAN
     Dosage: 3000 INTERNATIONAL UNIT, BID
     Route: 042
     Dates: start: 20210409, end: 20210411
  66. IDELVION [Suspect]
     Active Substance: COAGULATION FACTOR IX RECOMBINANT HUMAN
     Dosage: 6000 INTERNATIONAL UNIT, QD
     Route: 042
     Dates: start: 20210413, end: 20210413
  67. IDELVION [Suspect]
     Active Substance: COAGULATION FACTOR IX RECOMBINANT HUMAN
     Dosage: 6000 INTERNATIONAL UNIT, QD
     Route: 042
     Dates: start: 20210413, end: 20210413
  68. CLONIDINA [CLONIDINE HYDROCHLORIDE] [Concomitant]
     Dosage: 0.150 MILLIGRAM, TID
     Route: 050
     Dates: start: 20210418, end: 20210420
  69. ENOXAPARINA [Concomitant]
     Active Substance: ENOXAPARIN
     Dosage: 20 MILLIGRAM, QD
     Route: 058
     Dates: start: 20210410, end: 20210411
  70. FENTANILO [FENTANYL] [Concomitant]
     Dosage: 50 MICROGRAM, Q4H
     Route: 042
     Dates: start: 20210407, end: 20210408
  71. FENTANILO [FENTANYL] [Concomitant]
     Dosage: 50 MICROGRAM, CONTINOUS PERFUSION
     Route: 042
     Dates: start: 20210420, end: 20210424
  72. IDELVION [Suspect]
     Active Substance: COAGULATION FACTOR IX RECOMBINANT HUMAN
     Indication: HAEMARTHROSIS
     Dosage: UNK
     Route: 065
     Dates: start: 202101
  73. IDELVION [Suspect]
     Active Substance: COAGULATION FACTOR IX RECOMBINANT HUMAN
     Dosage: 4000 INTERNATIONAL UNIT, TOT
     Route: 042
     Dates: start: 20210203
  74. IDELVION [Suspect]
     Active Substance: COAGULATION FACTOR IX RECOMBINANT HUMAN
     Dosage: 2000 INTERNATIONAL UNIT, TOT
     Route: 042
     Dates: start: 20210318
  75. IDELVION [Suspect]
     Active Substance: COAGULATION FACTOR IX RECOMBINANT HUMAN
     Dosage: UNK
     Route: 042
     Dates: start: 20210405, end: 20210423
  76. IDELVION [Suspect]
     Active Substance: COAGULATION FACTOR IX RECOMBINANT HUMAN
     Dosage: 3000 INTERNATIONAL UNIT, BID
     Route: 042
     Dates: start: 20210409, end: 20210411
  77. IDELVION [Suspect]
     Active Substance: COAGULATION FACTOR IX RECOMBINANT HUMAN
     Dosage: 4000 INTERNATIONAL UNIT, SINGLE
     Route: 042
     Dates: start: 20210412, end: 20210412
  78. IDELVION [Suspect]
     Active Substance: COAGULATION FACTOR IX RECOMBINANT HUMAN
     Dosage: 4000 INTERNATIONAL UNIT, BID
     Route: 042
     Dates: start: 20210412, end: 20210412
  79. IDELVION [Suspect]
     Active Substance: COAGULATION FACTOR IX RECOMBINANT HUMAN
     Dosage: 2000 INTERNATIONAL UNIT, QD
     Route: 042
     Dates: start: 20210420, end: 20210420
  80. DOXAZOSINA [DOXAZOSIN] [Concomitant]
     Dosage: 4 MILLIGRAM, QD
     Route: 048
     Dates: start: 20210412, end: 20210415
  81. FLUDROCORTISONA [Concomitant]
     Dosage: 0.200 MILLIGRAM, BID
     Dates: start: 20210418, end: 20210420
  82. NICARDIPINO [Concomitant]
     Active Substance: NICARDIPINE
     Dosage: 20 MILLIGRAM, TID
     Dates: start: 20210406, end: 20210408
  83. PARAFFIN [Concomitant]
     Active Substance: PARAFFIN
     Dosage: 15 MILLILITER, QD
     Dates: start: 20210402, end: 20210420
  84. PARAFFIN [Concomitant]
     Active Substance: PARAFFIN
     Dosage: 15 MILLILITER, QD
     Dates: start: 20210423, end: 20210424
  85. IDELVION [Suspect]
     Active Substance: COAGULATION FACTOR IX RECOMBINANT HUMAN
     Indication: HAEMORRHAGE PROPHYLAXIS
     Dosage: 50 INTERNATIONAL UNIT/KILOGRAM, QOW
     Route: 065
  86. IDELVION [Suspect]
     Active Substance: COAGULATION FACTOR IX RECOMBINANT HUMAN
     Dosage: 4000 INTERNATIONAL UNIT, TOT
     Route: 042
     Dates: start: 20210203
  87. IDELVION [Suspect]
     Active Substance: COAGULATION FACTOR IX RECOMBINANT HUMAN
     Dosage: 4000 INTERNATIONAL UNIT, TOT
     Route: 042
     Dates: start: 20210210
  88. IDELVION [Suspect]
     Active Substance: COAGULATION FACTOR IX RECOMBINANT HUMAN
     Dosage: 4000 INTERNATIONAL UNIT, TOT
     Route: 042
     Dates: start: 20210315
  89. IDELVION [Suspect]
     Active Substance: COAGULATION FACTOR IX RECOMBINANT HUMAN
     Dosage: 4000 INTERNATIONAL UNIT, TOT
     Route: 042
     Dates: start: 20210322
  90. IDELVION [Suspect]
     Active Substance: COAGULATION FACTOR IX RECOMBINANT HUMAN
     Dosage: UNK
     Route: 042
     Dates: start: 20210405, end: 20210423
  91. IDELVION [Suspect]
     Active Substance: COAGULATION FACTOR IX RECOMBINANT HUMAN
     Dosage: 4000 INTERNATIONAL UNIT, BID
     Route: 042
     Dates: start: 20210412, end: 20210412
  92. IDELVION [Suspect]
     Active Substance: COAGULATION FACTOR IX RECOMBINANT HUMAN
     Dosage: 6000 INTERNATIONAL UNIT, QD
     Route: 042
     Dates: start: 20210414, end: 20210419
  93. CAPTOPRIL. [Concomitant]
     Active Substance: CAPTOPRIL
     Dosage: 25 MILLIGRAM, TID
     Dates: start: 20210408, end: 20210412
  94. CLONIDINA [CLONIDINE HYDROCHLORIDE] [Concomitant]
     Dosage: 0.150 MILLIGRAM, TID
     Dates: start: 20210406, end: 20210407
  95. CLORURO DE SODIO [Concomitant]
     Active Substance: SODIUM CHLORIDE
     Dosage: 500 MILLILITER, QD
     Route: 042
     Dates: start: 20210404, end: 20210405
  96. DEXMEDETOMIDINA [DEXMEDETOMIDINE] [Concomitant]
     Active Substance: DEXMEDETOMIDINE
     Dosage: 0.700 MCG/KG, QH
     Route: 042
     Dates: start: 20210420, end: 20210420
  97. FENTANILO [FENTANYL] [Concomitant]
     Dosage: 50 MICROGRAM, QH
     Route: 042
     Dates: start: 20210408, end: 20210409
  98. FLUDROCORTISONA [Concomitant]
     Dosage: 0.200 MILLIGRAM, BID
     Route: 048
     Dates: start: 20210413, end: 20210413
  99. GLUCOSA [GLUCOSE] [Concomitant]
     Active Substance: ANHYDROUS DEXTROSE
     Dosage: 500 MILLILITER, CONTINUOUS PERFUSION
     Route: 042
     Dates: start: 20210404, end: 20210405
  100. METAMIZOL [METAMIZOLE SODIUM] [Concomitant]
     Dosage: 2 GRAM, Q8H PRN IF PAIN OR FEVER
     Route: 042
     Dates: start: 20210407, end: 20210412
  101. MIDAZOLAM. [Concomitant]
     Active Substance: MIDAZOLAM
     Dosage: 10 MILLIGRAM, CONTINOUS PERFUSION
     Route: 042
     Dates: start: 20210423, end: 20210424
  102. OLANZAPINA [Concomitant]
     Active Substance: OLANZAPINE
     Dosage: 2.5 MILLIGRAM, QD
     Dates: start: 20210410, end: 20210412
  103. PARACETAMOL [Concomitant]
     Active Substance: ACETAMINOPHEN
     Dosage: 1000 MILLIGRAM, TID
     Route: 042
     Dates: start: 20210402, end: 20210402
  104. PARACETAMOL [Concomitant]
     Active Substance: ACETAMINOPHEN
     Dosage: 1000 MILLIGRAM, Q8H IF FEVER
     Route: 042
     Dates: start: 20210422, end: 20210424
  105. PROPOFOL. [Concomitant]
     Active Substance: PROPOFOL
     Dosage: 1 MILLIGRAM, CONTINUOUS BY PHYSICIAN^S ORDER
     Route: 042
     Dates: start: 20210420, end: 20210423
  106. IDELVION [Suspect]
     Active Substance: COAGULATION FACTOR IX RECOMBINANT HUMAN
     Indication: PROPHYLAXIS
     Dosage: 50 INTERNATIONAL UNIT/KILOGRAM, QW
     Route: 065
     Dates: start: 202011
  107. IDELVION [Suspect]
     Active Substance: COAGULATION FACTOR IX RECOMBINANT HUMAN
     Indication: FACTOR IX DEFICIENCY
     Dosage: 4000 INTERNATIONAL UNIT, QW
     Route: 042
     Dates: start: 20201111, end: 20210424
  108. IDELVION [Suspect]
     Active Substance: COAGULATION FACTOR IX RECOMBINANT HUMAN
     Indication: HAEMORRHAGE INTRACRANIAL
     Dosage: 2000 INTERNATIONAL UNIT, TOT
     Route: 042
     Dates: start: 20210114
  109. IDELVION [Suspect]
     Active Substance: COAGULATION FACTOR IX RECOMBINANT HUMAN
     Dosage: 4000 INTERNATIONAL UNIT, TOT
     Route: 042
     Dates: start: 20210122
  110. IDELVION [Suspect]
     Active Substance: COAGULATION FACTOR IX RECOMBINANT HUMAN
     Dosage: 4000 INTERNATIONAL UNIT, TOT
     Route: 042
     Dates: start: 20210128
  111. IDELVION [Suspect]
     Active Substance: COAGULATION FACTOR IX RECOMBINANT HUMAN
     Dosage: 4000 INTERNATIONAL UNIT, TOT
     Route: 042
     Dates: start: 20210128
  112. IDELVION [Suspect]
     Active Substance: COAGULATION FACTOR IX RECOMBINANT HUMAN
     Dosage: 4000 INTERNATIONAL UNIT, TOT
     Route: 042
     Dates: start: 20210210
  113. IDELVION [Suspect]
     Active Substance: COAGULATION FACTOR IX RECOMBINANT HUMAN
     Dosage: 2000 INTERNATIONAL UNIT, TOT
     Route: 042
     Dates: start: 20210409, end: 20210409
  114. IDELVION [Suspect]
     Active Substance: COAGULATION FACTOR IX RECOMBINANT HUMAN
     Dosage: 2000 INTERNATIONAL UNIT, BID
     Route: 042
     Dates: start: 20210405, end: 20210406
  115. IDELVION [Suspect]
     Active Substance: COAGULATION FACTOR IX RECOMBINANT HUMAN
     Dosage: 6000 INTERNATIONAL UNIT, QD
     Route: 042
     Dates: start: 20210414, end: 20210419
  116. CLONIDINA [CLONIDINE HYDROCHLORIDE] [Concomitant]
     Dosage: 0.150 MILLIGRAM, TID
     Dates: start: 20210410, end: 20210412
  117. CLORURO DE SODIO [Concomitant]
     Active Substance: SODIUM CHLORIDE
     Dosage: 500 MILLILITER, QD
     Route: 042
     Dates: start: 20210405, end: 20210406
  118. DOMPERIDONA [Concomitant]
     Active Substance: DOMPERIDONE
     Dosage: 10 MILLIGRAM, TID
     Dates: start: 20210405, end: 20210419
  119. GLUCOSA [GLUCOSE] [Concomitant]
     Active Substance: ANHYDROUS DEXTROSE
     Dosage: 500 MILLILITER, CONTINUOUS PERFUSION
     Route: 042
     Dates: start: 20210402, end: 20210403
  120. LINEZOLID. [Concomitant]
     Active Substance: LINEZOLID
     Dosage: 600 MILLIGRAM, BID
     Route: 042
     Dates: start: 20210412, end: 20210412
  121. METAMIZOL [METAMIZOLE SODIUM] [Concomitant]
     Dosage: 2 GRAM, TID
     Route: 042
     Dates: start: 20210407, end: 20210407
  122. MIDAZOLAM. [Concomitant]
     Active Substance: MIDAZOLAM
     Dosage: 1 MILLIGRAM, Q4H
     Route: 042
     Dates: start: 20210410, end: 20210412
  123. OMEPRAZOL [OMEPRAZOLE] [Concomitant]
     Active Substance: OMEPRAZOLE
     Dosage: 20 MILLIGRAM, QD
     Dates: start: 20210409, end: 20210420
  124. PARACETAMOL [Concomitant]
     Active Substance: ACETAMINOPHEN
     Dosage: 1000 MILLIGRAM, Q8H IF FEVER
     Route: 042
     Dates: start: 20210402, end: 20210407
  125. PARACETAMOL [Concomitant]
     Active Substance: ACETAMINOPHEN
     Dosage: 1000 MILLIGRAM, Q8H IF PAIN/FEVER
     Route: 042
     Dates: start: 20210409, end: 20210412
  126. PARACETAMOL [Concomitant]
     Active Substance: ACETAMINOPHEN
     Dosage: 1000 MILLIGRAM, Q6H IF FEVER
     Route: 042
     Dates: start: 20210412, end: 20210420
  127. QUETIAPINA [Concomitant]
     Active Substance: QUETIAPINE
     Dosage: 25 MILLIGRAM, BID
     Dates: start: 20210407, end: 20210409
  128. IDELVION [Suspect]
     Active Substance: COAGULATION FACTOR IX RECOMBINANT HUMAN
     Indication: FACTOR IX DEFICIENCY
     Dosage: 4000 INTERNATIONAL UNIT, QW
     Route: 042
     Dates: start: 20201111, end: 20210424
  129. IDELVION [Suspect]
     Active Substance: COAGULATION FACTOR IX RECOMBINANT HUMAN
     Dosage: 4000 INTERNATIONAL UNIT, TOT
     Route: 042
     Dates: start: 20210122
  130. IDELVION [Suspect]
     Active Substance: COAGULATION FACTOR IX RECOMBINANT HUMAN
     Dosage: 4000 INTERNATIONAL UNIT, TOT
     Route: 042
     Dates: start: 20210217
  131. IDELVION [Suspect]
     Active Substance: COAGULATION FACTOR IX RECOMBINANT HUMAN
     Dosage: 4000 INTERNATIONAL UNIT, TOT
     Route: 042
     Dates: start: 20210308
  132. IDELVION [Suspect]
     Active Substance: COAGULATION FACTOR IX RECOMBINANT HUMAN
     Dosage: 4000 INTERNATIONAL UNIT
     Route: 042
     Dates: start: 20210329
  133. IDELVION [Suspect]
     Active Substance: COAGULATION FACTOR IX RECOMBINANT HUMAN
     Dosage: 4000 INTERNATIONAL UNIT, TOT
     Route: 042
     Dates: start: 202104, end: 202104
  134. IDELVION [Suspect]
     Active Substance: COAGULATION FACTOR IX RECOMBINANT HUMAN
     Dosage: UNK
     Route: 042
     Dates: start: 20210405, end: 20210423
  135. IDELVION [Suspect]
     Active Substance: COAGULATION FACTOR IX RECOMBINANT HUMAN
     Dosage: 3000 INTERNATIONAL UNIT, BID
     Route: 042
     Dates: start: 20210407, end: 20210408
  136. IDELVION [Suspect]
     Active Substance: COAGULATION FACTOR IX RECOMBINANT HUMAN
     Dosage: 3000 INTERNATIONAL UNIT, BID
     Route: 042
     Dates: start: 20210407, end: 20210408
  137. IDELVION [Suspect]
     Active Substance: COAGULATION FACTOR IX RECOMBINANT HUMAN
     Dosage: 2000 INTERNATIONAL UNIT, QD
     Route: 042
     Dates: start: 20210420, end: 20210420
  138. DOXAZOSINA [DOXAZOSIN] [Concomitant]
     Dosage: 4 MILLIGRAM, PRN IF BLOOD PRESSURE
     Dates: start: 20210415, end: 20210420
  139. ENOXAPARINA [Concomitant]
     Active Substance: ENOXAPARIN
     Dosage: 40 MILLIGRAM, QD
     Route: 058
     Dates: start: 20210408, end: 20210410
  140. FITOMENADIONA [Concomitant]
     Active Substance: PHYTONADIONE
     Dosage: 10 MILLIGRAM, QD
     Route: 042
     Dates: start: 20210413, end: 20210420
  141. FLUDROCORTISONA [Concomitant]
     Dosage: 0.200 MILLIGRAM, BID
     Dates: start: 20210413, end: 20210418
  142. LEVETIRACETAM. [Concomitant]
     Active Substance: LEVETIRACETAM
     Dosage: 1000 MILLIGRAM, BID
     Route: 042
     Dates: start: 20210403, end: 20210410
  143. NICARDIPINO [Concomitant]
     Active Substance: NICARDIPINE
     Dosage: 20 MILLIGRAM, TID
     Dates: start: 20210412, end: 20210415
  144. PARACETAMOL [Concomitant]
     Active Substance: ACETAMINOPHEN
     Dosage: 1000 MILLIGRAM, Q6H IF PAIN/FEVER
     Route: 042
     Dates: start: 20210412, end: 20210412
  145. POTASSIUM CHLORIDE AND SODIUM CHLORIDE [Concomitant]
     Active Substance: POTASSIUM CHLORIDE\SODIUM CHLORIDE
     Dosage: 100 MILLILITER, QD CONTINUOUS
     Route: 042
     Dates: start: 20210406, end: 20210409

REACTIONS (15)
  - Haemorrhage intracranial [Recovering/Resolving]
  - Intracranial haematoma [Recovering/Resolving]
  - Drug ineffective [Fatal]
  - Haemarthrosis [Recovered/Resolved]
  - Haemorrhage intracranial [Fatal]
  - Haemarthrosis [Recovered/Resolved]
  - Traumatic haemorrhage [Recovered/Resolved]
  - Pain [Unknown]
  - Myalgia [Unknown]
  - Pyrexia [Unknown]
  - Spontaneous haemorrhage [Recovered/Resolved]
  - Monoplegia [Recovering/Resolving]
  - Pain [Unknown]
  - Hemiplegia [Recovering/Resolving]
  - Pneumonia [Unknown]

NARRATIVE: CASE EVENT DATE: 202011
